FAERS Safety Report 13467445 (Version 1)
Quarter: 2017Q2

REPORT INFORMATION
  Report Type: Spontaneous
  Country: US (occurrence: US)
  Receive Date: 20170421
  Receipt Date: 20170421
  Transmission Date: 20170830
  Serious: Yes (Life-Threatening)
  Sender: FDA-Public Use
  Company Number: None

PATIENT
  Age: 60 Year
  Sex: Female
  Weight: 101.2 kg

DRUGS (6)
  1. PROJEL-20 [Suspect]
     Active Substance: BENZOCAINE
     Indication: PROCEDURAL PAIN
     Route: 061
  2. BLOOD PRESSURE MEDICINE [Concomitant]
     Active Substance: UNSPECIFIED INGREDIENT
  3. D [Concomitant]
  4. FISH OIL [Concomitant]
     Active Substance: FISH OIL
  5. FOLIC ACID. [Concomitant]
     Active Substance: FOLIC ACID
  6. ASPIRIN. [Concomitant]
     Active Substance: ASPIRIN

REACTIONS (3)
  - Swollen tongue [None]
  - Mouth swelling [None]
  - Gingival swelling [None]
